FAERS Safety Report 9769819 (Version 1)
Quarter: 2013Q4

REPORT INFORMATION
  Report Type: Spontaneous
  Country: US (occurrence: US)
  Receive Date: 20131218
  Receipt Date: 20131218
  Transmission Date: 20140711
  Serious: No
  Sender: FDA-Public Use
  Company Number: US-VERTEX PHARMACEUTICALS INC-AE-2011-000619

PATIENT
  Sex: 0

DRUGS (19)
  1. INCIVEK [Suspect]
     Indication: HEPATITIS C
     Route: 048
     Dates: start: 20110709
  2. PEGASYS [Concomitant]
     Indication: HEPATITIS C
     Route: 058
     Dates: start: 20110708
  3. COPEGUS [Concomitant]
     Indication: HEPATITIS C
     Route: 048
     Dates: start: 20110709
  4. FENOFIBRATE [Concomitant]
     Indication: HYPERLIPIDAEMIA
     Route: 048
     Dates: start: 2008
  5. METFORMIN [Concomitant]
     Indication: DIABETES PROPHYLAXIS
     Route: 048
     Dates: start: 2010
  6. VALIUM [Concomitant]
     Indication: SLEEP DISORDER
     Route: 048
     Dates: start: 2008
  7. VITAMIN C [Concomitant]
     Indication: VITAMIN SUPPLEMENTATION
     Route: 048
  8. QUERCETEN [Concomitant]
     Indication: PHYTOTHERAPY
     Route: 048
  9. MILK THISTLE [Concomitant]
     Route: 048
  10. N-A-C [Concomitant]
     Route: 048
  11. L-GLUTATHIONE [Concomitant]
     Route: 048
  12. FISH OIL [Concomitant]
     Route: 048
  13. ZINC [Concomitant]
     Route: 048
  14. ALA [Concomitant]
     Route: 048
  15. VITAMIN E [Concomitant]
     Route: 048
  16. SELENIUM [Concomitant]
     Route: 048
  17. FOLIC ACID [Concomitant]
     Route: 048
  18. BLUEBERRY FRUIT EXTRACT [Concomitant]
     Route: 048
  19. SAM-E [Concomitant]
     Route: 048

REACTIONS (4)
  - Irritability [Not Recovered/Not Resolved]
  - Feeling abnormal [Not Recovered/Not Resolved]
  - Fatigue [Not Recovered/Not Resolved]
  - Nausea [Not Recovered/Not Resolved]
